FAERS Safety Report 9344372 (Version 1)
Quarter: 2013Q2

REPORT INFORMATION
  Report Type: Report from Study
  Country: US (occurrence: US)
  Receive Date: 20130612
  Receipt Date: 20130612
  Transmission Date: 20140414
  Serious: Yes (Other)
  Sender: FDA-Public Use
  Company Number: US-PFIZER INC-2013171104

PATIENT
  Age: 72 Year
  Sex: Male

DRUGS (3)
  1. OXALIPLATIN [Suspect]
     Indication: THYROID CANCER
     Dosage: 130 MG/M2, EVERY 3 WEEKS ON DAY 1
     Route: 042
  2. DOCETAXEL [Suspect]
     Indication: THYROID CANCER
     Dosage: 75 MG/M2, EVERY 3 WEEKS ON DAY 1(DOSE LEVEL 2)
     Route: 042
  3. DEXAMETHASONE [Concomitant]

REACTIONS (13)
  - Lymphopenia [Unknown]
  - Neutropenia [Unknown]
  - White blood cell count decreased [Unknown]
  - Gastritis [Unknown]
  - Diarrhoea [Unknown]
  - Hypophosphataemia [Unknown]
  - Depressed level of consciousness [Unknown]
  - Tumour pain [Unknown]
  - Febrile neutropenia [Unknown]
  - Myocardial infarction [Unknown]
  - Lymphopenia [Unknown]
  - Neutropenia [Unknown]
  - White blood cell count decreased [Unknown]
